FAERS Safety Report 14433229 (Version 3)
Quarter: 2019Q1

REPORT INFORMATION
  Report Type: Spontaneous
  Country: US (occurrence: US)
  Receive Date: 20180124
  Receipt Date: 20190102
  Transmission Date: 20190417
  Serious: No
  Sender: FDA-Public Use
  Company Number: US-PCCINC-2017-PEL-003157

PATIENT

DRUGS (7)
  1. GABLOFEN [Suspect]
     Active Substance: BACLOFEN
     Indication: SPINAL CORD INJURY
     Dosage: 130 ?G, QD (BRIDGE BOLUS)
     Route: 037
  2. GABLOFEN [Suspect]
     Active Substance: BACLOFEN
     Indication: MUSCLE SPASTICITY
     Dosage: 120.8 ?G, QD
     Route: 037
  3. GABLOFEN [Suspect]
     Active Substance: BACLOFEN
     Indication: MUSCLE SPASTICITY
     Dosage: 65 ?G, QD (FLOWRATE OF 0.13ML)
     Route: 037
     Dates: start: 20170830
  4. GABLOFEN [Suspect]
     Active Substance: BACLOFEN
     Indication: SPINAL CORD DISORDER
  5. GABLOFEN [Suspect]
     Active Substance: BACLOFEN
     Indication: MUSCLE SPASTICITY
     Dosage: 64.95 ?G, QD
     Route: 037
  6. GABLOFEN [Suspect]
     Active Substance: BACLOFEN
     Indication: SPINAL CORD INJURY
  7. GABLOFEN [Suspect]
     Active Substance: BACLOFEN
     Indication: SPINAL CORD INJURY
     Dosage: 80 ?G, QD
     Route: 037
     Dates: start: 20170830

REACTIONS (1)
  - Product selection error [Recovered/Resolved]

NARRATIVE: CASE EVENT DATE: 20170726
